FAERS Safety Report 4315928-0 (Version None)
Quarter: 2004Q1

REPORT INFORMATION
  Report Type: 
  Country: None (occurrence: None)
  Receive Date: 20040310
  Receipt Date: 20040226
  Transmission Date: 20041129
  Serious: Yes (Death)
  Sender: FDA-Public Use
  Company Number: 200402936

PATIENT
  Age: 12 Month
  Sex: Female

DRUGS (3)
  1. IMODIUM [Suspect]
     Indication: GASTROENTERITIS
     Dosage: 2 DOSES PO
     Route: 048
  2. MOTILIUM [Suspect]
     Indication: GASTROENTERITIS
     Dosage: PO
     Route: 048
  3. SMECTA [Concomitant]

REACTIONS (1)
  - DEATH [None]
